FAERS Safety Report 9116159 (Version 1)
Quarter: 2013Q1

REPORT INFORMATION
  Report Type: Spontaneous
  Country: US (occurrence: US)
  Receive Date: 20130225
  Receipt Date: 20130225
  Transmission Date: 20140127
  Serious: No
  Sender: FDA-Public Use
  Company Number: US-ENDO PHARMACEUTICALS INC.-FORT20120222

PATIENT
  Sex: Male
  Weight: 74 kg

DRUGS (4)
  1. FORTESTA [Suspect]
     Indication: HORMONE REPLACEMENT THERAPY
     Route: 061
     Dates: start: 2012
  2. FLOMAX [Concomitant]
     Indication: PROSTATIC DISORDER
     Dosage: UNKNOWN
     Route: 048
  3. PRILOSEC [Concomitant]
     Indication: GASTROOESOPHAGEAL REFLUX DISEASE
     Dosage: UNKNOWN
     Route: 048
  4. NORFLEX [Concomitant]
     Indication: MUSCLE RELAXANT THERAPY
     Dosage: UNKNOWN
     Route: 048

REACTIONS (4)
  - Application site dryness [Not Recovered/Not Resolved]
  - Application site exfoliation [Not Recovered/Not Resolved]
  - Oedema peripheral [Not Recovered/Not Resolved]
  - Generalised erythema [Not Recovered/Not Resolved]
